FAERS Safety Report 16904277 (Version 3)
Quarter: 2020Q3

REPORT INFORMATION
  Report Type: Spontaneous
  Country: AU (occurrence: AU)
  Receive Date: 20191010
  Receipt Date: 20200706
  Transmission Date: 20201102
  Serious: Yes (Other)
  Sender: FDA-Public Use
  Company Number: AU-JNJFOC-20190938258

PATIENT
  Age: 19 Year
  Sex: Female

DRUGS (8)
  1. METHOTREXATE. [Suspect]
     Active Substance: METHOTREXATE
  2. COLCHICINE. [Suspect]
     Active Substance: COLCHICINE
  3. CIMZIA [Suspect]
     Active Substance: CERTOLIZUMAB PEGOL
  4. STELARA [Suspect]
     Active Substance: USTEKINUMAB
     Indication: PRODUCT USED FOR UNKNOWN INDICATION
     Route: 058
  5. ANAKINRA [Suspect]
     Active Substance: ANAKINRA
  6. SULFASALAZINE. [Concomitant]
     Active Substance: SULFASALAZINE
  7. MICROGYNON                         /00022701/ [Concomitant]
     Active Substance: ETHINYL ESTRADIOL\LEVONORGESTREL ACETATE
  8. COSENTYX [Suspect]
     Active Substance: SECUKINUMAB

REACTIONS (11)
  - Axial spondyloarthritis [Unknown]
  - Nausea [Unknown]
  - Hyperparathyroidism secondary [Unknown]
  - Treatment failure [Unknown]
  - Diarrhoea [Unknown]
  - Gamma-glutamyltransferase increased [Unknown]
  - Vertigo [Unknown]
  - Autoinflammatory disease [Unknown]
  - Barotrauma [Unknown]
  - Sacroiliitis [Unknown]
  - Vitamin D decreased [Unknown]
